FAERS Safety Report 23262674 (Version 1)
Quarter: 2023Q4

REPORT INFORMATION
  Report Type: Spontaneous
  Country: US (occurrence: None)
  Receive Date: 20231204
  Receipt Date: 20231204
  Transmission Date: 20240109
  Serious: Yes (Hospitalization)
  Sender: FDA-Public Use
  Company Number: None

PATIENT
  Sex: Female

DRUGS (1)
  1. OXBRYTA [Suspect]
     Active Substance: VOXELOTOR
     Indication: Thalassaemia sickle cell
     Dosage: 1000MG ONCE DAILY ORAL
     Route: 048
     Dates: start: 202310

REACTIONS (4)
  - Pleural effusion [None]
  - Peripheral swelling [None]
  - Peripheral swelling [None]
  - Therapy interrupted [None]
